FAERS Safety Report 10630677 (Version 2)
Quarter: 2014Q4

REPORT INFORMATION
  Report Type: Spontaneous
  Country: US (occurrence: US)
  Receive Date: 20141205
  Receipt Date: 20141205
  Transmission Date: 20150529
  Serious: No
  Sender: FDA-Public Use
  Company Number: US-BRISTOL-MYERS SQUIBB COMPANY-21324181

PATIENT
  Age: 59 Year
  Sex: Male

DRUGS (5)
  1. SYNVISC [Concomitant]
     Active Substance: HYALURONATE SODIUM
  2. NEXIAM [Concomitant]
     Active Substance: ESOMEPRAZOLE
  3. TRAMADOL [Concomitant]
     Active Substance: TRAMADOL
  4. OXYCODONE [Concomitant]
     Active Substance: OXYCODONE
  5. SPRYCEL [Suspect]
     Active Substance: DASATINIB
     Indication: CHRONIC MYELOID LEUKAEMIA
     Route: 048
     Dates: start: 20140806

REACTIONS (2)
  - Pain in extremity [Unknown]
  - Photosensitivity reaction [Unknown]
